FAERS Safety Report 6948376-5 (Version None)
Quarter: 2010Q3

REPORT INFORMATION
  Report Type: 
  Country: None (occurrence: None)
  Receive Date: 20100828
  Receipt Date: 20100126
  Transmission Date: 20110219
  Serious: No
  Sender: FDA-Public Use
  Company Number: US-ABBOTT-08P-163-0449471-00

PATIENT
  Sex: Male
  Weight: 59.02 kg

DRUGS (13)
  1. NIASPAN [Suspect]
     Indication: HIGH DENSITY LIPOPROTEIN DECREASED
     Route: 048
     Dates: end: 20080201
  2. NIASPAN [Suspect]
     Indication: LOW DENSITY LIPOPROTEIN INCREASED
     Dosage: COATED, AT NIGHT
     Route: 048
     Dates: start: 20080201
  3. NIASPAN [Suspect]
     Dosage: AT NIGHT, WHITE
     Route: 048
     Dates: start: 20030101
  4. TRICOR [Suspect]
     Indication: PRODUCT USED FOR UNKNOWN INDICATION
  5. LIPITOR [Concomitant]
     Indication: PRODUCT USED FOR UNKNOWN INDICATION
     Route: 048
  6. FISH OIL [Concomitant]
     Indication: PRODUCT USED FOR UNKNOWN INDICATION
     Route: 048
  7. VIRAMUNE [Concomitant]
     Indication: HIV TEST POSITIVE
     Route: 048
  8. ISENTRESS [Concomitant]
     Indication: HIV TEST POSITIVE
     Route: 048
  9. MICARDIS [Concomitant]
     Indication: HYPERTENSION
     Route: 048
  10. LABETALOL HCL [Concomitant]
     Indication: HYPERTENSION
     Route: 048
  11. ANDROGEL [Concomitant]
     Indication: BLOOD TESTOSTERONE DECREASED
  12. ASPIRIN [Concomitant]
     Indication: PROPHYLAXIS
  13. ASPIRIN [Concomitant]
     Indication: CARDIAC DISORDER

REACTIONS (3)
  - BLOOD GLUCOSE INCREASED [None]
  - FLUSHING [None]
  - PANCREATIC ENZYMES INCREASED [None]
